FAERS Safety Report 8010981-5 (Version None)
Quarter: 2011Q4

REPORT INFORMATION
  Report Type: 
  Country: None (occurrence: None)
  Receive Date: 20111228
  Receipt Date: 20111221
  Transmission Date: 20120403
  Serious: Yes (Other)
  Sender: FDA-Public Use
  Company Number: KR-PFIZER INC-2011310872

PATIENT
  Sex: Female

DRUGS (1)
  1. XANAX [Suspect]
     Dosage: 0.25 MG 2XDAY AND 0.5 MG 1XDAY
     Route: 048

REACTIONS (10)
  - ASTHENIA [None]
  - PARAESTHESIA [None]
  - FEELING ABNORMAL [None]
  - PAIN [None]
  - FATIGUE [None]
  - DEPRESSION [None]
  - SOMNOLENCE [None]
  - HYPERAESTHESIA [None]
  - ANXIETY [None]
  - TREMOR [None]
